FAERS Safety Report 13746715 (Version 2)
Quarter: 2017Q3

REPORT INFORMATION
  Report Type: Spontaneous
  Country: DE (occurrence: DE)
  Receive Date: 20170712
  Receipt Date: 20170726
  Transmission Date: 20171127
  Serious: Yes (Disabling, Other)
  Sender: FDA-Public Use
  Company Number: DE-BAYER-2017-129016

PATIENT
  Age: 51 Year
  Sex: Female
  Weight: 56 kg

DRUGS (1)
  1. AVALOX [Suspect]
     Active Substance: MOXIFLOXACIN HYDROCHLORIDE
     Indication: UPPER RESPIRATORY TRACT INFECTION
     Dosage: 400 MG, QD
     Dates: start: 201703, end: 201703

REACTIONS (12)
  - Myalgia [None]
  - Visual impairment [None]
  - Mental disorder [Recovering/Resolving]
  - Facial paralysis [Recovering/Resolving]
  - Arthralgia [Recovering/Resolving]
  - Chest discomfort [Recovering/Resolving]
  - Myalgia [Recovering/Resolving]
  - Anxiety [Recovering/Resolving]
  - Fatigue [Recovering/Resolving]
  - Trismus [Recovering/Resolving]
  - Sensory disturbance [Recovering/Resolving]
  - Hypoacusis [None]

NARRATIVE: CASE EVENT DATE: 201703
